FAERS Safety Report 7289392-6 (Version None)
Quarter: 2011Q1

REPORT INFORMATION
  Report Type: 
  Country: None (occurrence: None)
  Receive Date: 20110211
  Receipt Date: 20110207
  Transmission Date: 20110831
  Serious: Yes (Other)
  Sender: FDA-Public Use
  Company Number: JP-PFIZER INC-2011026519

PATIENT
  Age: 73 Year
  Sex: Male

DRUGS (12)
  1. URINORM [Concomitant]
  2. ZYVOX [Suspect]
     Indication: STAPHYLOCOCCAL INFECTION
     Dosage: 600 MG, 2X/DAY
     Route: 041
     Dates: start: 20101025, end: 20101114
  3. ZYVOX [Suspect]
     Dosage: 600 MG, 2X/DAY
     Route: 048
     Dates: start: 20101115, end: 20101206
  4. BIOFERMIN R [Concomitant]
  5. FESIN [Concomitant]
  6. PREDONINE [Concomitant]
  7. URALYT [Concomitant]
  8. BENET [Concomitant]
  9. PENTCILLIN [Concomitant]
  10. OMEPRAL [Concomitant]
  11. CALBLOCK [Concomitant]
  12. MALFA [Concomitant]

REACTIONS (3)
  - STOMATITIS [None]
  - GASTROINTESTINAL DISORDER [None]
  - HAEMOGLOBIN DECREASED [None]
